FAERS Safety Report 25308455 (Version 4)
Quarter: 2025Q4

REPORT INFORMATION
  Report Type: Report from Study
  Country: US (occurrence: US)
  Receive Date: 20250513
  Receipt Date: 20251204
  Transmission Date: 20260117
  Serious: No
  Sender: SANOFI AVENTIS
  Company Number: US-SA-2025SA134105

PATIENT
  Age: 2 Year
  Sex: Male
  Weight: 14.966 kg

DRUGS (1)
  1. DUPIXENT [Suspect]
     Active Substance: DUPILUMAB
     Indication: Eczema
     Dosage: 200 MG, Q4W
     Route: 058
     Dates: start: 20250324

REACTIONS (6)
  - Scratch [Unknown]
  - Pruritus [Recovering/Resolving]
  - Insomnia [Unknown]
  - Rash [Unknown]
  - Therapeutic response shortened [Unknown]
  - Product prescribing issue [Unknown]

NARRATIVE: CASE EVENT DATE: 20250101
